FAERS Safety Report 6150143-X (Version None)
Quarter: 2009Q2

REPORT INFORMATION
  Report Type: 
  Country: None (occurrence: None)
  Receive Date: 20090407
  Receipt Date: 20090327
  Transmission Date: 20091009
  Serious: Yes (Other)
  Sender: FDA-Public Use
  Company Number: 2009SP006753

PATIENT
  Age: 4 Year
  Sex: Female

DRUGS (3)
  1. TEMOZOLOMIDE [Suspect]
     Indication: GLIOMA
     Dosage: 75 MG/M2; QD; PO 200 MG/M2; QD; PO
     Route: 048
  2. TEMOZOLOMIDE [Suspect]
     Indication: GLIOMA
     Dosage: 75 MG/M2; QD; PO 200 MG/M2; QD; PO
     Route: 048
  3. CIS-RETINOIC (ISOTRETINOIN) [Suspect]
     Indication: GLIOMA
     Dosage: 100 MG/M2; QD; PO
     Route: 048

REACTIONS (4)
  - DISEASE PROGRESSION [None]
  - FEBRILE NEUTROPENIA [None]
  - NAUSEA [None]
  - VOMITING [None]
